FAERS Safety Report 24996683 (Version 1)
Quarter: 2025Q1

REPORT INFORMATION
  Report Type: Report from Study
  Country: GB (occurrence: GB)
  Receive Date: 20250221
  Receipt Date: 20250221
  Transmission Date: 20250408
  Serious: Yes (Other)
  Sender: TEVA
  Company Number: GB-TEVA-VS-3299932

PATIENT
  Age: 53 Year
  Sex: Female

DRUGS (1)
  1. AJOVY [Suspect]
     Active Substance: FREMANEZUMAB-VFRM
     Indication: Migraine
     Dosage: AJOVY 225MG/1.5ML PFP 3
     Route: 058

REACTIONS (4)
  - Seizure [Unknown]
  - Migraine [Unknown]
  - Neck pain [Unknown]
  - Inappropriate schedule of product administration [Unknown]
